FAERS Safety Report 5934122-0 (Version None)
Quarter: 2008Q4

REPORT INFORMATION
  Report Type: 
  Country: None (occurrence: None)
  Receive Date: 20081029
  Receipt Date: 20081022
  Transmission Date: 20090506
  Serious: Yes (Hospitalization, Congenital Anomaly)
  Sender: FDA-Public Use
  Company Number: A0680870A

PATIENT
  Sex: Male

DRUGS (2)
  1. PAXIL [Suspect]
     Indication: DEPRESSION
     Dosage: 30MG UNKNOWN
     Dates: start: 19980825, end: 20060101
  2. PAROXETINE HCL [Suspect]
     Indication: DEPRESSION
     Dates: start: 20040503, end: 20051030

REACTIONS (8)
  - ATRIAL SEPTAL DEFECT [None]
  - DRUG EXPOSURE DURING PREGNANCY [None]
  - LUNG DISORDER [None]
  - PATENT DUCTUS ARTERIOSUS [None]
  - PERIVENTRICULAR LEUKOMALACIA [None]
  - PULMONARY VALVE STENOSIS [None]
  - RESPIRATORY FAILURE [None]
  - VENTRICULAR HYPERTROPHY [None]
